FAERS Safety Report 4677441-0 (Version None)
Quarter: 2005Q2

REPORT INFORMATION
  Report Type: 
  Country: None (occurrence: None)
  Receive Date: 20050526
  Receipt Date: 20050526
  Transmission Date: 20051028
  Serious: Yes (Life-Threatening, Disabling)
  Sender: FDA-Public Use
  Company Number: None

PATIENT
  Age: 40 Year
  Sex: Female
  Weight: 65.7716 kg

DRUGS (3)
  1. PAROXETINE HCL [Suspect]
     Indication: DEPRESSION
     Dosage: 40 MG   ONCE DAILY   ORAL
     Route: 048
     Dates: start: 19980101, end: 20050525
  2. PAROXETINE HCL [Suspect]
     Indication: MOOD SWINGS
     Dosage: 40 MG   ONCE DAILY   ORAL
     Route: 048
     Dates: start: 19980101, end: 20050525
  3. PAXIL CR [Suspect]
     Dosage: 25 MG   TWICE DAILY   ORAL
     Route: 048

REACTIONS (8)
  - ABNORMAL BEHAVIOUR [None]
  - AGGRESSION [None]
  - DEPRESSION [None]
  - DRUG DEPENDENCE [None]
  - INFLUENZA LIKE ILLNESS [None]
  - MOOD SWINGS [None]
  - PAIN [None]
  - SUICIDAL IDEATION [None]
